FAERS Safety Report 7979595-7 (Version None)
Quarter: 2011Q4

REPORT INFORMATION
  Report Type: 
  Country: None (occurrence: None)
  Receive Date: 20111214
  Receipt Date: 20111209
  Transmission Date: 20120403
  Serious: Yes (Other)
  Sender: FDA-Public Use
  Company Number: GB-ABBOTT-11P-167-0882138-00

PATIENT
  Age: 89 Year
  Sex: Male
  Weight: 104 kg

DRUGS (18)
  1. ACETAMINOPHEN AND CODEINE PHOSPHATE [Concomitant]
     Indication: PRODUCT USED FOR UNKNOWN INDICATION
     Dates: start: 20110825, end: 20110906
  2. SIMVASTATIN [Concomitant]
     Indication: PRODUCT USED FOR UNKNOWN INDICATION
     Dates: start: 20110825
  3. DOUBLEBASE [Concomitant]
     Indication: PRODUCT USED FOR UNKNOWN INDICATION
     Dates: start: 20110923, end: 20110924
  4. ACETAMINOPHEN AND CODEINE PHOSPHATE [Concomitant]
     Dates: start: 20111024, end: 20111105
  5. POLYETHYLENE GLYCOL [Concomitant]
     Dates: start: 20111010, end: 20111107
  6. BISOPROLOL FUMARATE [Concomitant]
     Indication: PRODUCT USED FOR UNKNOWN INDICATION
     Dates: start: 20110825
  7. VALSARTAN [Concomitant]
     Indication: PRODUCT USED FOR UNKNOWN INDICATION
     Dates: start: 20110825
  8. BECONASE [Concomitant]
     Indication: PRODUCT USED FOR UNKNOWN INDICATION
     Dates: start: 20111017, end: 20111114
  9. BECONASE [Concomitant]
     Dates: start: 20111121
  10. ACETAMINOPHEN AND CODEINE PHOSPHATE [Concomitant]
     Dates: start: 20110923, end: 20111005
  11. FUROSEMIDE [Concomitant]
     Indication: PRODUCT USED FOR UNKNOWN INDICATION
     Dates: start: 20110825
  12. POLYETHYLENE GLYCOL [Concomitant]
     Indication: PRODUCT USED FOR UNKNOWN INDICATION
     Dates: start: 20110825, end: 20110908
  13. SPIRONOLACTONE [Concomitant]
     Indication: PRODUCT USED FOR UNKNOWN INDICATION
     Dates: start: 20110825
  14. CLARITHROMYCIN [Suspect]
     Indication: PRODUCT USED FOR UNKNOWN INDICATION
     Dates: start: 20111122, end: 20111129
  15. ACETAMINOPHEN AND CODEINE PHOSPHATE [Concomitant]
     Dates: start: 20111121
  16. ALLOPURINOL [Concomitant]
     Indication: PRODUCT USED FOR UNKNOWN INDICATION
     Dates: start: 20110825
  17. ASPIRIN [Concomitant]
     Indication: PRODUCT USED FOR UNKNOWN INDICATION
     Dates: start: 20110825
  18. POLYETHYLENE GLYCOL [Concomitant]
     Dates: start: 20111121

REACTIONS (2)
  - HALLUCINATION, VISUAL [None]
  - URINARY INCONTINENCE [None]
